FAERS Safety Report 5034355-4 (Version None)
Quarter: 2006Q2

REPORT INFORMATION
  Report Type: 
  Country: None (occurrence: None)
  Receive Date: 20060626
  Receipt Date: 20060614
  Transmission Date: 20061013
  Serious: Yes (Other)
  Sender: FDA-Public Use
  Company Number: FR-ROCHE-452408

PATIENT
  Sex: Male

DRUGS (1)
  1. INTERFERON ALFA [Suspect]
     Indication: DRUG USE FOR UNKNOWN INDICATION
     Route: 065
     Dates: start: 20041103

REACTIONS (1)
  - RETINAL DETACHMENT [None]
